FAERS Safety Report 4598047-8 (Version None)
Quarter: 2005Q1

REPORT INFORMATION
  Report Type: 
  Country: None (occurrence: None)
  Receive Date: 20050207
  Receipt Date: 20040702
  Transmission Date: 20050727
  Serious: Yes (Hospitalization)
  Sender: FDA-Public Use
  Company Number: MEDI-0002088 (0)

PATIENT
  Age: 57 Year
  Sex: Male
  Weight: 108.4097 kg

DRUGS (5)
  1. ETHYOL [Suspect]
     Indication: RADIOTHERAPY
     Dosage: 500 MG, 5 IN 1 WK, SUBCUTANEOUS
     Route: 058
     Dates: start: 20040621, end: 20040630
  2. RADIATION THERAPY [Concomitant]
  3. CHEMOTHERAPY [Concomitant]
  4. DEXAMETHASONE [Concomitant]
  5. KYTRIL [Concomitant]

REACTIONS (3)
  - BODY TEMPERATURE INCREASED [None]
  - ERYTHEMA MULTIFORME [None]
  - INJECTION SITE REACTION [None]
